FAERS Safety Report 24148660 (Version 1)
Quarter: 2024Q3

REPORT INFORMATION
  Report Type: Spontaneous
  Country: JP (occurrence: JP)
  Receive Date: 20240729
  Receipt Date: 20240729
  Transmission Date: 20241017
  Serious: Yes (Other)
  Sender: JOHNSON AND JOHNSON
  Company Number: JP-JNJFOC-20240771603

PATIENT
  Age: 4 Decade
  Sex: Male

DRUGS (4)
  1. RISPERDAL [Suspect]
     Active Substance: RISPERIDONE
     Indication: Product used for unknown indication
     Route: 048
  2. EPINEPHRINE [Concomitant]
     Active Substance: EPINEPHRINE
     Indication: Anaphylactic shock
     Route: 030
  3. EPINEPHRINE [Concomitant]
     Active Substance: EPINEPHRINE
     Route: 030
  4. EPINEPHRINE [Concomitant]
     Active Substance: EPINEPHRINE
     Dosage: 0.6-1.2UG/MIN
     Route: 041

REACTIONS (2)
  - Drug tolerance [Unknown]
  - Intentional overdose [Unknown]
